FAERS Safety Report 8010189-3 (Version None)
Quarter: 2011Q4

REPORT INFORMATION
  Report Type: 
  Country: None (occurrence: None)
  Receive Date: 20111221
  Receipt Date: 20111206
  Transmission Date: 20120403
  Serious: Yes (Hospitalization)
  Sender: FDA-Public Use
  Company Number: FR-1189349

PATIENT
  Age: 71 Year
  Sex: Female

DRUGS (12)
  1. LAMALINE [Concomitant]
  2. FLECAINIDE ACETATE [Concomitant]
  3. AZOPT [Suspect]
     Dosage: OPHTHALMIC
     Route: 047
     Dates: end: 20111019
  4. IRBESARTAN [Concomitant]
  5. LYRICA [Concomitant]
  6. LEVOTHYROXINE SODIUM [Concomitant]
  7. ESCITALOPRAM OXALATE [Concomitant]
  8. LANSOPRAZOLE [Concomitant]
  9. FLUTICASONE PROPIONATE/SALMETEROL [Concomitant]
  10. FUROSEMIDE [Concomitant]
  11. TRAMADOL HCL [Concomitant]
  12. AIROMIR [Concomitant]

REACTIONS (5)
  - ORTHOSTATIC HYPOTENSION [None]
  - MALAISE [None]
  - FALL [None]
  - DISORIENTATION [None]
  - BUNDLE BRANCH BLOCK RIGHT [None]
